FAERS Safety Report 24748610 (Version 4)
Quarter: 2025Q2

REPORT INFORMATION
  Report Type: Spontaneous
  Country: US (occurrence: US)
  Receive Date: 20241218
  Receipt Date: 20250626
  Transmission Date: 20250717
  Serious: No
  Sender: VERTEX
  Company Number: US-VERTEX PHARMACEUTICALS-2024-019325

PATIENT

DRUGS (2)
  1. TRIKAFTA [Suspect]
     Active Substance: ELEXACAFTOR\IVACAFTOR\TEZACAFTOR
     Indication: Cystic fibrosis
     Route: 048
  2. TRIKAFTA [Suspect]
     Active Substance: ELEXACAFTOR\IVACAFTOR\TEZACAFTOR
     Dosage: HALF DOSE OF THE MORNING PILLS 1 ORANGE TAB
     Route: 048

REACTIONS (6)
  - Hepatic steatosis [Not Recovered/Not Resolved]
  - Blood cholesterol increased [Unknown]
  - Sputum increased [Unknown]
  - Alopecia [Recovered/Resolved]
  - Abdominal distension [Recovering/Resolving]
  - Hepatic enzyme increased [Not Recovered/Not Resolved]
